FAERS Safety Report 24717481 (Version 1)
Quarter: 2024Q4

REPORT INFORMATION
  Report Type: Spontaneous
  Country: US (occurrence: None)
  Receive Date: 20241210
  Receipt Date: 20241210
  Transmission Date: 20250114
  Serious: Yes (Hospitalization)
  Sender: Public
  Company Number: None

PATIENT
  Sex: Female

DRUGS (1)
  1. WILATE - VON WILLEBRAND FACTOR/COAGULATION FACTOR VIII COMPLEX (HUMAN) [Suspect]
     Active Substance: HUMAN COAGULATION FACTOR VIII/VON WILLEBRAND FACTOR COMPLEX
     Indication: Von Willebrand^s disease
     Dosage: OTHER QUANTITY : 2500 RCOF UNITS;? INFUSE 2500 RCOF UNITS (2250-2750) SLOW IV ON THE FIRST DAY OF ME
     Route: 042
     Dates: start: 202403

REACTIONS (2)
  - Heavy menstrual bleeding [None]
  - Ovarian cyst ruptured [None]

NARRATIVE: CASE EVENT DATE: 20241104
